FAERS Safety Report 11614876 (Version 1)
Quarter: 2015Q4

REPORT INFORMATION
  Report Type: Spontaneous
  Country: FR (occurrence: FR)
  Receive Date: 20151009
  Receipt Date: 20151009
  Transmission Date: 20160304
  Serious: Yes (Death, Hospitalization)
  Sender: FDA-Public Use
  Company Number: FR-TEVA-598094ISR

PATIENT
  Age: 48 Year
  Sex: Male

DRUGS (6)
  1. CISPLATINE TEVA 1 MG/1 ML [Suspect]
     Active Substance: CISPLATIN
     Indication: ADENOCARCINOMA
     Dosage: FIRST COURSE
     Route: 042
     Dates: start: 20150302, end: 20150309
  2. CISPLATINE TEVA 1 MG/1 ML [Suspect]
     Active Substance: CISPLATIN
     Dosage: SECOND COURSE
     Route: 042
     Dates: start: 20150402, end: 20150414
  3. NAVELBINE [Suspect]
     Active Substance: VINORELBINE TARTRATE
     Dosage: SECOND COURSE
     Route: 042
     Dates: start: 20150402, end: 20150414
  4. CISPLATINE TEVA 1 MG/1 ML [Suspect]
     Active Substance: CISPLATIN
     Dosage: THIRD COURSE
     Route: 042
     Dates: start: 20150505, end: 20150513
  5. NAVELBINE [Suspect]
     Active Substance: VINORELBINE TARTRATE
     Indication: ADENOCARCINOMA
     Dosage: FIRTH COURSE
     Route: 042
     Dates: start: 20150302, end: 20150309
  6. NAVELBINE [Suspect]
     Active Substance: VINORELBINE TARTRATE
     Dosage: THIRD COURSE
     Route: 042
     Dates: start: 20150505, end: 20150513

REACTIONS (6)
  - Tinnitus [Not Recovered/Not Resolved]
  - Thrombocytopenia [Not Recovered/Not Resolved]
  - Balance disorder [Unknown]
  - Asthenia [Unknown]
  - Acute vestibular syndrome [Not Recovered/Not Resolved]
  - Deafness bilateral [Not Recovered/Not Resolved]

NARRATIVE: CASE EVENT DATE: 2015
